FAERS Safety Report 14981352 (Version 1)
Quarter: 2018Q2

REPORT INFORMATION
  Report Type: Spontaneous
  Country: US (occurrence: US)
  Receive Date: 20180606
  Receipt Date: 20180606
  Transmission Date: 20180711
  Serious: No
  Sender: FDA-Public Use
  Company Number: US-XIROMED, LLC-XIRO20180306

PATIENT
  Sex: Female

DRUGS (1)
  1. ESTARYLLA [Suspect]
     Active Substance: ETHINYL ESTRADIOL\NORGESTIMATE
     Indication: CONTRACEPTION
     Dosage: UNKNOWN
     Route: 048

REACTIONS (2)
  - Product substitution issue [None]
  - Nausea [Unknown]
